FAERS Safety Report 12339152 (Version 2)
Quarter: 2016Q2

REPORT INFORMATION
  Report Type: Spontaneous
  Country: JP (occurrence: JP)
  Receive Date: 20160505
  Receipt Date: 20160518
  Transmission Date: 20160815
  Serious: Yes (Hospitalization, Other)
  Sender: FDA-Public Use
  Company Number: JP-GLAXOSMITHKLINE-JP2016GSK063307

PATIENT
  Age: 44 Year
  Sex: Male

DRUGS (1)
  1. DICLOFENAC SODIUM. [Suspect]
     Active Substance: DICLOFENAC SODIUM
     Indication: PYREXIA
     Route: 048

REACTIONS (9)
  - Seizure [Unknown]
  - Dyspnoea [Unknown]
  - Asthma [Unknown]
  - Chest pain [Unknown]
  - Respiratory rate decreased [Unknown]
  - Altered state of consciousness [Unknown]
  - Wheezing [Unknown]
  - Respiratory failure [Unknown]
  - Aspirin-exacerbated respiratory disease [Unknown]
